FAERS Safety Report 5073236-7 (Version None)
Quarter: 2006Q3

REPORT INFORMATION
  Report Type: 
  Country: None (occurrence: None)
  Receive Date: 20060802
  Receipt Date: 20060718
  Transmission Date: 20061208
  Serious: Yes (Other)
  Sender: FDA-Public Use
  Company Number: US-2006-017065

PATIENT
  Age: 42 Year
  Sex: Female
  Weight: 56.7 kg

DRUGS (13)
  1. BETASERON [Suspect]
     Indication: RELAPSING-REMITTING MULTIPLE SCLEROSIS
     Dosage: SEE IMAGE
     Route: 058
     Dates: start: 19950327, end: 19960301
  2. BETASERON [Suspect]
     Indication: RELAPSING-REMITTING MULTIPLE SCLEROSIS
     Dosage: SEE IMAGE
     Route: 058
     Dates: start: 19980101, end: 20060411
  3. BETASERON [Suspect]
     Indication: RELAPSING-REMITTING MULTIPLE SCLEROSIS
     Dosage: SEE IMAGE
     Route: 058
     Dates: start: 20060414
  4. OXYBUTYNIN CHLORIDE (OXYBUTYNIN HYDROCHLORIDE) [Concomitant]
  5. BACLOFEN [Concomitant]
  6. NITROFURANTOIN [Concomitant]
  7. CLONAZEPAM [Concomitant]
  8. MECLIZINE [Concomitant]
  9. CALCIUM WITH VITAMIN D (CALCIUM SODIUM LACTATE, CALCIUM PHOSPHATE) [Concomitant]
  10. VITAMIN E [Concomitant]
  11. FISH OIL [Concomitant]
  12. MAGNESIUM [Concomitant]
  13. MULTIVITAMINS (RETINOL, PANTHENOL) [Concomitant]

REACTIONS (14)
  - CONDITION AGGRAVATED [None]
  - DISORIENTATION [None]
  - DIZZINESS [None]
  - DRUG DOSE OMISSION [None]
  - DRUG INEFFECTIVE [None]
  - EPISTAXIS [None]
  - EXCORIATION [None]
  - HEAD INJURY [None]
  - LOSS OF CONSCIOUSNESS [None]
  - MULTIPLE SCLEROSIS RELAPSE [None]
  - NAUSEA [None]
  - NYSTAGMUS [None]
  - SKIN LACERATION [None]
  - WHITE BLOOD CELL COUNT DECREASED [None]
